FAERS Safety Report 14235107 (Version 5)
Quarter: 2018Q1

REPORT INFORMATION
  Report Type: Spontaneous
  Country: US (occurrence: US)
  Receive Date: 20171129
  Receipt Date: 20180228
  Transmission Date: 20180508
  Serious: Yes (Other)
  Sender: FDA-Public Use
  Company Number: US-JNJFOC-20171126602

PATIENT
  Age: 9 Year
  Sex: Male
  Weight: 17.69 kg

DRUGS (5)
  1. JOHNSONS BABY LOTION [Suspect]
     Active Substance: COSMETICS
     Indication: PRODUCT USED FOR UNKNOWN INDICATION
     Route: 061
  2. J+J BABY COLOGNE UNSPECIFIED [Suspect]
     Active Substance: COSMETICS
     Indication: PRODUCT USED FOR UNKNOWN INDICATION
  3. JOHNSONS PRODUCTS (ZINC OXIDE) [Suspect]
     Active Substance: ZINC OXIDE
     Indication: PRODUCT USED FOR UNKNOWN INDICATION
     Route: 061
  4. JOHNSONS BABY BAR SOAP UNPSECIFIED [Suspect]
     Active Substance: COSMETICS
     Indication: PRODUCT USED FOR UNKNOWN INDICATION
     Route: 061
  5. JOHNSONS BABY SHAMPOO UNSPECIFIED [Suspect]
     Active Substance: COSMETICS
     Indication: PRODUCT USED FOR UNKNOWN INDICATION
     Route: 061

REACTIONS (1)
  - Brain neoplasm malignant [Recovering/Resolving]
